FAERS Safety Report 25128337 (Version 2)
Quarter: 2025Q2

REPORT INFORMATION
  Report Type: Spontaneous
  Country: GR (occurrence: GR)
  Receive Date: 20250327
  Receipt Date: 20250403
  Transmission Date: 20250717
  Serious: Yes (Life-Threatening, Hospitalization, Other)
  Sender: ACCORD
  Company Number: GR-Accord-475733

PATIENT
  Age: 60 Year
  Sex: Female

DRUGS (3)
  1. ESCITALOPRAM [Suspect]
     Active Substance: ESCITALOPRAM OXALATE
     Indication: Schizoaffective disorder
  2. AMISULPRIDE [Suspect]
     Active Substance: AMISULPRIDE
     Indication: Schizoaffective disorder
  3. CIPROFLOXACIN [Suspect]
     Active Substance: CIPROFLOXACIN
     Indication: Urinary tract infection

REACTIONS (6)
  - Long QT syndrome [Recovered/Resolved]
  - Myocardial ischaemia [Recovered/Resolved]
  - Ventricular fibrillation [Recovered/Resolved]
  - Lactic acidosis [Unknown]
  - Cardiac arrest [Recovered/Resolved]
  - Coronary artery disease [Recovered/Resolved]
